FAERS Safety Report 8152669-6 (Version None)
Quarter: 2012Q1

REPORT INFORMATION
  Report Type: 
  Country: None (occurrence: None)
  Receive Date: 20120221
  Receipt Date: 20120213
  Transmission Date: 20120608
  Serious: Yes (Other)
  Sender: FDA-Public Use
  Company Number: PHHY2012GB012166

PATIENT
  Age: 48 Year
  Sex: Female

DRUGS (2)
  1. CITALOPRAM HYDROBROMIDE [Concomitant]
     Dosage: UNK UKN, UNK
     Dates: start: 20111118, end: 20111216
  2. MIRTAZAPINE [Suspect]
     Dosage: UNK UKN, UNK
     Dates: start: 20111216

REACTIONS (3)
  - ELEVATED MOOD [None]
  - MOOD SWINGS [None]
  - CONDITION AGGRAVATED [None]
